FAERS Safety Report 8430236-4 (Version None)
Quarter: 2012Q2

REPORT INFORMATION
  Report Type: 
  Country: None (occurrence: None)
  Receive Date: 20120612
  Receipt Date: 20120604
  Transmission Date: 20120825
  Serious: Yes (Hospitalization, Other)
  Sender: FDA-Public Use
  Company Number: US-BAYER-200943413NA

PATIENT
  Age: 33 Year
  Sex: Female
  Weight: 131.82 kg

DRUGS (8)
  1. ENALAPRIL MALEATE [Concomitant]
  2. ASPIRIN [Concomitant]
  3. YASMIN [Suspect]
     Indication: CONTRACEPTION
     Route: 048
     Dates: start: 20071029
  4. ZANTAC [Concomitant]
     Indication: GASTROOESOPHAGEAL REFLUX DISEASE
  5. METFORMIN HCL [Concomitant]
  6. TRAMADOL HCL [Concomitant]
  7. PROGESTERONE [Concomitant]
     Indication: AMENORRHOEA
     Dosage: 200 MG, UNK
     Route: 030
     Dates: start: 20071130
  8. PROGESTIN INJ [Concomitant]

REACTIONS (7)
  - SWELLING [None]
  - MENORRHAGIA [None]
  - DEEP VEIN THROMBOSIS [None]
  - GAIT DISTURBANCE [None]
  - PAIN IN EXTREMITY [None]
  - HOMANS' SIGN POSITIVE [None]
  - IRON DEFICIENCY ANAEMIA [None]
